FAERS Safety Report 9503311 (Version 4)
Quarter: 2013Q4

REPORT INFORMATION
  Report Type: Report from Study
  Country: GR (occurrence: GR)
  Receive Date: 20130906
  Receipt Date: 20131002
  Transmission Date: 20140711
  Serious: Yes (Life-Threatening, Hospitalization)
  Sender: FDA-Public Use
  Company Number: GR-AMGEN-GRCCT2013062214

PATIENT
  Age: 76 Year
  Sex: Male
  Weight: 59 kg

DRUGS (5)
  1. PANITUMUMAB [Suspect]
     Indication: GASTRIC CANCER
     Dosage: 6 MG/KG, Q2WK
     Route: 042
     Dates: start: 20130429
  2. CDDP [Concomitant]
     Indication: GASTRIC CANCER
     Dosage: 65 MG, Q2WK
     Route: 042
     Dates: start: 20130429
  3. DOCETAXEL [Concomitant]
     Indication: GASTRIC CANCER
     Dosage: 50 MG, Q2WK
     Route: 042
     Dates: start: 20130429
  4. LEUCOVORIN [Concomitant]
     Indication: GASTRIC CANCER
     Dosage: 500 MG, Q2WK
     Route: 042
     Dates: start: 20130429
  5. 5 FU [Concomitant]
     Indication: GASTRIC CANCER
     Dosage: 2600 MG, Q2WK
     Route: 042
     Dates: start: 20130429

REACTIONS (7)
  - Mucosal inflammation [Recovered/Resolved]
  - Neutropenia [Recovered/Resolved]
  - Dermatitis acneiform [Recovered/Resolved]
  - Decreased appetite [Recovered/Resolved]
  - Fatigue [Recovering/Resolving]
  - Constipation [Recovered/Resolved]
  - Epistaxis [Recovered/Resolved]
